FAERS Safety Report 9377647 (Version 1)
Quarter: 2013Q2

REPORT INFORMATION
  Report Type: Spontaneous
  Country: GB (occurrence: None)
  Receive Date: 20130625
  Receipt Date: 20130625
  Transmission Date: 20140414
  Serious: Yes (Congenital Anomaly, Other)
  Sender: FDA-Public Use
  Company Number: AUR-APL-2013-05189

PATIENT
  Sex: 0
  Weight: 2.3 kg

DRUGS (6)
  1. ALENDRONIC ACID (ALENDRONIC ACID) [Suspect]
     Indication: PRODUCT USED FOR UNKNOWN INDICATION
     Route: 064
  2. METHYLPREDNISOLONE (METHYLPREDNISOLONE) [Suspect]
     Indication: SYSTEMIC LUPUS ERYTHEMATOSUS
     Dosage: CYCLIC ON DAY 1 AND DAY 15
     Route: 064
  3. METHYLPREDNISOLONE (METHYLPREDNISOLONE) [Suspect]
     Indication: LUPUS NEPHRITIS
     Dosage: CYCLIC ON DAY 1 AND DAY 15
     Route: 064
  4. RITUXIMAB (RITUXIMAB) [Suspect]
     Indication: SYSTEMIC LUPUS ERYTHEMATOSUS
  5. RITUXIMAB (RITUXIMAB) [Suspect]
     Indication: LUPUS NEPHRITIS
  6. HYDROXYCHLOROQUINE (HYDROXYCHLOROQUINE) [Concomitant]

REACTIONS (3)
  - Premature baby [None]
  - Oesophageal atresia [None]
  - Maternal drugs affecting foetus [None]
